FAERS Safety Report 4301944-1 (Version None)
Quarter: 2004Q1

REPORT INFORMATION
  Report Type: 
  Country: None (occurrence: None)
  Receive Date: 20040220
  Receipt Date: 19990128
  Transmission Date: 20041129
  Serious: Yes (Death, Hospitalization)
  Sender: FDA-Public Use
  Company Number: 1999AD00212

PATIENT
  Age: 73 Year
  Sex: Female
  Weight: 50 kg

DRUGS (6)
  1. PULMICORT [Suspect]
     Dosage: 0.4 MG BID IH
     Route: 055
     Dates: start: 19980925, end: 19981014
  2. KALEORID [Suspect]
     Dates: start: 19981002, end: 19981014
  3. NEBCIN [Suspect]
     Dates: start: 19981002, end: 19981014
  4. IPRATROPIUM BROMIDE [Suspect]
     Dates: start: 19980925, end: 19981021
  5. TERSIGAT [Suspect]
     Dates: start: 19980925, end: 19981014
  6. CLAVENTIN [Suspect]
     Dates: start: 19981002, end: 19981014

REACTIONS (3)
  - BONE MARROW DEPRESSION [None]
  - COOMBS TEST POSITIVE [None]
  - THROMBOCYTOPENIA [None]
